FAERS Safety Report 9038699 (Version 1)
Quarter: 2013Q1

REPORT INFORMATION
  Report Type: Spontaneous
  Country: US (occurrence: US)
  Receive Date: 20130129
  Receipt Date: 20130129
  Transmission Date: 20140127
  Serious: No
  Sender: FDA-Public Use
  Company Number: US-ABBOTT-12P-163-0934956-00

PATIENT
  Sex: Male
  Weight: 80.36 kg

DRUGS (5)
  1. HUMIRA 40 MG/0.8 ML PEN [Suspect]
     Indication: CROHN^S DISEASE
     Route: 058
     Dates: start: 2009
  2. IRON [Concomitant]
     Indication: ANAEMIA
  3. VITAMIN B12 [Concomitant]
     Indication: VITAMIN SUPPLEMENTATION
  4. UNKNOWN MEDICATION [Concomitant]
     Indication: PARKINSON^S DISEASE
  5. UNKNOWN MEDICATION [Concomitant]
     Indication: HYPERTENSION

REACTIONS (2)
  - Asthenia [Not Recovered/Not Resolved]
  - Fatigue [Not Recovered/Not Resolved]
